FAERS Safety Report 13469233 (Version 2)
Quarter: 2017Q2

REPORT INFORMATION
  Report Type: Spontaneous
  Country: FR (occurrence: FR)
  Receive Date: 20170421
  Receipt Date: 20170508
  Transmission Date: 20170830
  Serious: Yes (Other)
  Sender: FDA-Public Use
  Company Number: FR-PFIZER INC-2017177574

PATIENT
  Age: 57 Year
  Sex: Female

DRUGS (2)
  1. VOLTAREN [Concomitant]
     Active Substance: DICLOFENAC SODIUM
     Dosage: UNK
  2. IMETH [Suspect]
     Active Substance: METHOTREXATE SODIUM
     Indication: PSORIASIS
     Dosage: 15 MG, WEEKLY
     Route: 048
     Dates: start: 201302

REACTIONS (1)
  - Deafness unilateral [Recovering/Resolving]

NARRATIVE: CASE EVENT DATE: 201703
